FAERS Safety Report 24877029 (Version 1)
Quarter: 2025Q1

REPORT INFORMATION
  Report Type: Spontaneous
  Country: US (occurrence: US)
  Receive Date: 20250123
  Receipt Date: 20250123
  Transmission Date: 20250409
  Serious: No
  Sender: ROCHE
  Company Number: US-ROCHE-10000185795

PATIENT
  Age: 23 Year
  Sex: Male

DRUGS (34)
  1. RITUXIMAB [Suspect]
     Active Substance: RITUXIMAB
     Indication: Dermatomyositis
     Route: 065
  2. OMALIZUMAB [Suspect]
     Active Substance: OMALIZUMAB
     Indication: Dermatomyositis
     Route: 065
  3. PREDNISONE [Suspect]
     Active Substance: PREDNISONE
     Indication: Dermatomyositis
     Route: 065
  4. METHOTREXATE [Suspect]
     Active Substance: METHOTREXATE
     Indication: Dermatomyositis
     Route: 065
  5. TACROLIMUS [Suspect]
     Active Substance: TACROLIMUS
     Indication: Dermatomyositis
     Route: 065
  6. CLOBETASOL [Suspect]
     Active Substance: CLOBETASOL
     Indication: Dermatomyositis
     Route: 065
  7. LIDOCAINE [Suspect]
     Active Substance: LIDOCAINE
     Indication: Dermatomyositis
     Route: 065
  8. CANNABIDIOL\HERBALS [Suspect]
     Active Substance: CANNABIDIOL\HERBALS
     Indication: Dermatomyositis
     Route: 065
  9. ITCH-X [Suspect]
     Active Substance: BENZYL ALCOHOL\PRAMOXINE HYDROCHLORIDE
     Indication: Dermatomyositis
     Route: 065
  10. NALTREXONE [Suspect]
     Active Substance: NALTREXONE
     Indication: Dermatomyositis
     Route: 065
  11. LORATADINE [Suspect]
     Active Substance: LORATADINE
     Indication: Dermatomyositis
     Route: 065
  12. CETIRIZINE [Suspect]
     Active Substance: CETIRIZINE HYDROCHLORIDE
     Indication: Dermatomyositis
     Route: 065
  13. FEXOFENADINE [Suspect]
     Active Substance: FEXOFENADINE HYDROCHLORIDE
     Indication: Dermatomyositis
     Route: 065
  14. LEVOCETIRIZINE [Suspect]
     Active Substance: LEVOCETIRIZINE
     Indication: Dermatomyositis
     Route: 065
  15. CYPROHEPTADINE [Suspect]
     Active Substance: CYPROHEPTADINE
     Indication: Dermatomyositis
     Route: 065
  16. HYDROXYZINE [Suspect]
     Active Substance: HYDROXYZINE HYDROCHLORIDE
     Indication: Dermatomyositis
     Route: 065
  17. DIPHENHYDRAMINE [Suspect]
     Active Substance: DIPHENHYDRAMINE
     Indication: Dermatomyositis
     Route: 065
  18. DUPILUMAB [Suspect]
     Active Substance: DUPILUMAB
     Indication: Dermatomyositis
     Route: 065
  19. LEVETIRACETAM [Suspect]
     Active Substance: LEVETIRACETAM
     Indication: Dermatomyositis
     Route: 065
  20. ZONISAMIDE [Suspect]
     Active Substance: ZONISAMIDE
     Indication: Dermatomyositis
     Route: 065
  21. BUTORPHANOL [Suspect]
     Active Substance: BUTORPHANOL
     Indication: Dermatomyositis
     Route: 065
  22. GABAPENTIN [Suspect]
     Active Substance: GABAPENTIN
     Indication: Dermatomyositis
     Route: 065
  23. PREGABALIN [Suspect]
     Active Substance: PREGABALIN
     Indication: Dermatomyositis
     Route: 065
  24. DULOXETINE [Suspect]
     Active Substance: DULOXETINE
     Indication: Dermatomyositis
     Route: 065
  25. AMITRIPTYLINE [Suspect]
     Active Substance: AMITRIPTYLINE
     Indication: Dermatomyositis
     Route: 065
  26. DOXEPIN [Suspect]
     Active Substance: DOXEPIN
     Indication: Dermatomyositis
     Route: 065
  27. SECUKINUMAB [Suspect]
     Active Substance: SECUKINUMAB
     Indication: Dermatomyositis
     Route: 065
  28. CLONIDINE [Suspect]
     Active Substance: CLONIDINE
     Indication: Dermatomyositis
     Route: 065
  29. MEXILETINE [Suspect]
     Active Substance: MEXILETINE
     Indication: Dermatomyositis
     Route: 065
  30. PROPRANOLOL [Suspect]
     Active Substance: PROPRANOLOL HYDROCHLORIDE
     Indication: Dermatomyositis
     Route: 065
  31. GLYCOPYRROLATE [Suspect]
     Active Substance: GLYCOPYRROLATE
     Indication: Dermatomyositis
     Route: 065
  32. FAMOTIDINE [Suspect]
     Active Substance: FAMOTIDINE
     Indication: Dermatomyositis
     Route: 065
  33. APREPITANT [Suspect]
     Active Substance: APREPITANT
     Indication: Dermatomyositis
     Route: 065
  34. TOFACITINIB [Concomitant]
     Active Substance: TOFACITINIB
     Indication: Dermatomyositis

REACTIONS (2)
  - Drug ineffective [Unknown]
  - No adverse event [Unknown]
